FAERS Safety Report 10309945 (Version 1)
Quarter: 2014Q3

REPORT INFORMATION
  Report Type: Spontaneous
  Country: US (occurrence: None)
  Receive Date: 20140715
  Receipt Date: 20140715
  Transmission Date: 20150326
  Serious: No
  Sender: FDA-Public Use
  Company Number: None

PATIENT
  Age: 51 Year
  Sex: Female
  Weight: 65.77 kg

DRUGS (1)
  1. LEXAPRO [Suspect]
     Active Substance: ESCITALOPRAM OXALATE
     Indication: DEPRESSION
     Dosage: ONE TABLET AT BEDTIME TAKEN BY MOUTH
     Route: 048
     Dates: start: 20110201, end: 20140711

REACTIONS (9)
  - Blood alcohol increased [None]
  - Road traffic accident [None]
  - Agitation [None]
  - Loss of consciousness [None]
  - Alcohol use [None]
  - Memory impairment [None]
  - Imprisonment [None]
  - Stress [None]
  - Hostility [None]

NARRATIVE: CASE EVENT DATE: 20140623
